FAERS Safety Report 25457768 (Version 4)
Quarter: 2025Q3

REPORT INFORMATION
  Report Type: Report from Study
  Country: US (occurrence: US)
  Receive Date: 20250619
  Receipt Date: 20250808
  Transmission Date: 20251021
  Serious: Yes (Other)
  Sender: MALLINCKRODT
  Company Number: US-MALLINCKRODT-MNK202503510

PATIENT
  Age: 77 Year
  Sex: Female

DRUGS (7)
  1. CORTICOTROPIN [Suspect]
     Active Substance: CORTICOTROPIN
     Indication: Ocular pemphigoid
     Dosage: 80 UNITS
     Route: 058
     Dates: start: 20250604
  2. AMLODIPINE [Concomitant]
     Active Substance: AMLODIPINE BESYLATE
  3. OMEPRAZOLE [Concomitant]
     Active Substance: OMEPRAZOLE
  4. SYNTHROID [Concomitant]
     Active Substance: LEVOTHYROXINE SODIUM
  5. DIFLUCAN [Concomitant]
     Active Substance: FLUCONAZOLE
  6. DOXYCYCLINE [Concomitant]
     Active Substance: DOXYCYCLINE
  7. REPATHA [Concomitant]
     Active Substance: EVOLOCUMAB
     Indication: Blood cholesterol increased

REACTIONS (10)
  - Dacryostenosis acquired [Not Recovered/Not Resolved]
  - Urinary tract infection [Unknown]
  - Blood pressure increased [Unknown]
  - Meibomian gland dysfunction [Not Recovered/Not Resolved]
  - Joint injury [Unknown]
  - Contusion [Unknown]
  - Oedema peripheral [Unknown]
  - Mood altered [Unknown]
  - Injection site bruising [Unknown]
  - Inhibitory drug interaction [Unknown]

NARRATIVE: CASE EVENT DATE: 20250101
